FAERS Safety Report 23617282 (Version 1)
Quarter: 2024Q1

REPORT INFORMATION
  Report Type: Spontaneous
  Country: US (occurrence: None)
  Receive Date: 20240309
  Receipt Date: 20240309
  Transmission Date: 20240409
  Serious: Yes (Disabling, Other)
  Sender: FDA-Public Use
  Company Number: None

PATIENT
  Age: 68 Year
  Sex: Female
  Weight: 74.25 kg

DRUGS (4)
  1. PROLIA [Suspect]
     Active Substance: DENOSUMAB
     Indication: Osteoporosis
     Dosage: OTHER FREQUENCY : EVERY 6 MONTHS;?
     Route: 030
  2. CALCIUM [Concomitant]
     Active Substance: CALCIUM
  3. MAGNESIUM [Concomitant]
     Active Substance: MAGNESIUM
  4. VITAMINS [Concomitant]
     Active Substance: VITAMINS

REACTIONS (13)
  - Cognitive disorder [None]
  - Sensory loss [None]
  - Myalgia [None]
  - Rash [None]
  - Rash [None]
  - Cough [None]
  - Dry mouth [None]
  - Dizziness [None]
  - Asthenia [None]
  - Fatigue [None]
  - Photophobia [None]
  - Migraine [None]
  - Depression [None]

NARRATIVE: CASE EVENT DATE: 20231221
